FAERS Safety Report 6010180-2 (Version None)
Quarter: 2008Q4

REPORT INFORMATION
  Report Type: 
  Country: None (occurrence: None)
  Receive Date: 20081217
  Receipt Date: 20081217
  Transmission Date: 20090506
  Serious: Yes (Other)
  Sender: FDA-Public Use
  Company Number: None

PATIENT
  Sex: Female
  Weight: 77.1115 kg

DRUGS (5)
  1. MORPHINE SULFATE [Suspect]
     Indication: PAIN
     Dosage: 2 DAILY
     Dates: start: 20081024
  2. BENAZEPRIL HYDROCHLORIDE [Suspect]
     Indication: DEPRESSION
     Dosage: 2 DAILY
     Dates: start: 20081024
  3. NORTRIPTYLINE HCL [Concomitant]
  4. CITALOPRAM HYDROBROMIDE [Concomitant]
  5. BENAZEPRIL HYDROCHLORIDE [Concomitant]

REACTIONS (6)
  - ERYTHEMA [None]
  - LOCAL SWELLING [None]
  - SOMNOLENCE [None]
  - SWELLING FACE [None]
  - UNEVALUABLE EVENT [None]
  - URTICARIA [None]
